FAERS Safety Report 7215803-8 (Version None)
Quarter: 2011Q1

REPORT INFORMATION
  Report Type: 
  Country: None (occurrence: None)
  Receive Date: 20110107
  Receipt Date: 20101228
  Transmission Date: 20110831
  Serious: Yes (Hospitalization)
  Sender: FDA-Public Use
  Company Number: FR-PFIZER INC-2010179804

PATIENT
  Age: 46 Year
  Sex: Female

DRUGS (4)
  1. MEDROL [Suspect]
     Indication: PREMEDICATION
     Dosage: 50 MG, 2X/DAY
     Route: 048
     Dates: start: 20101027, end: 20101029
  2. MEDROL [Suspect]
     Indication: BREAST CANCER
  3. HERCEPTIN [Suspect]
     Indication: BREAST CANCER
     Dosage: 496 MG, CYCLIC
     Route: 041
     Dates: start: 20101028, end: 20101028
  4. HERCEPTIN [Suspect]
     Dosage: 370 MG, CYCLIC
     Route: 041
     Dates: start: 20101118

REACTIONS (2)
  - CHILLS [None]
  - NAUSEA [None]
